FAERS Safety Report 24237949 (Version 1)
Quarter: 2024Q3

REPORT INFORMATION
  Report Type: Report from Study
  Country: US (occurrence: US)
  Receive Date: 20240822
  Receipt Date: 20240822
  Transmission Date: 20241017
  Serious: Yes (Other)
  Sender: ABBVIE
  Company Number: US-ABBVIE-5798705

PATIENT
  Sex: Female

DRUGS (4)
  1. SKYRIZI [Suspect]
     Active Substance: RISANKIZUMAB-RZAA
     Indication: Psoriasis
     Dosage: FORM STRENGTH: 150 MG, WEEK 0
     Route: 058
     Dates: start: 20240206, end: 20240206
  2. SKYRIZI [Suspect]
     Active Substance: RISANKIZUMAB-RZAA
     Dosage: FORM STRENGTH: 150 MG, WEEK 4
     Route: 058
     Dates: start: 20240305, end: 20240305
  3. SKYRIZI [Suspect]
     Active Substance: RISANKIZUMAB-RZAA
     Dosage: FORM STRENGTH: 150 MG, FIRST ADMIN DATE: 2024
     Route: 058
     Dates: end: 202405
  4. SKYRIZI [Suspect]
     Active Substance: RISANKIZUMAB-RZAA
     Dosage: FORM STRENGTH: 150 MG, FIRST ADMIN DATE: 2024
     Route: 058

REACTIONS (5)
  - Rotator cuff syndrome [Unknown]
  - COVID-19 [Recovered/Resolved]
  - Eye irritation [Unknown]
  - Illness [Unknown]
  - Pruritus [Unknown]

NARRATIVE: CASE EVENT DATE: 20240101
